FAERS Safety Report 5442990-4 (Version None)
Quarter: 2007Q3

REPORT INFORMATION
  Report Type: 
  Country: None (occurrence: None)
  Receive Date: 20070905
  Receipt Date: 20070829
  Transmission Date: 20080115
  Serious: Yes (Other)
  Sender: FDA-Public Use
  Company Number: PHBS2007BR14459

PATIENT
  Age: 2 Year
  Sex: Male
  Weight: 16 kg

DRUGS (4)
  1. GARAMYCIN [Concomitant]
     Dosage: UNK, Q12H
     Dates: start: 20070828
  2. GARAMYCIN [Concomitant]
     Dosage: 1 AMPOULE/DAY
     Dates: start: 20070829
  3. TOBREX [Concomitant]
     Dosage: UNK, BID
     Dates: start: 20070828
  4. CATAFLAM [Suspect]
     Dosage: 75 MG, ONCE/SINGLE
     Route: 054
     Dates: start: 20070828, end: 20070828

REACTIONS (5)
  - EYE DISCHARGE [None]
  - EYE PAIN [None]
  - EYE SWELLING [None]
  - MEDICATION ERROR [None]
  - WRONG DRUG ADMINISTERED [None]
